FAERS Safety Report 7918950-8 (Version None)
Quarter: 2011Q4

REPORT INFORMATION
  Report Type: 
  Country: None (occurrence: None)
  Receive Date: 20111116
  Receipt Date: 20111107
  Transmission Date: 20120403
  Serious: Yes (Other)
  Sender: FDA-Public Use
  Company Number: US-SANOFI-AVENTIS-2011SA070030

PATIENT
  Sex: Male
  Weight: 77 kg

DRUGS (7)
  1. SOLOSTAR [Suspect]
     Dates: start: 20100101
  2. LANTUS [Suspect]
     Dosage: DOSE:23 UNIT(S)
     Route: 058
     Dates: start: 20101201
  3. LANTUS [Suspect]
     Dosage: DOSE:22 UNIT(S)
     Route: 058
  4. ACCUPRIL [Concomitant]
  5. LANTUS [Suspect]
     Dosage: DOSE:25 UNIT(S)
     Route: 058
  6. METOPROLOL TARTRATE [Concomitant]
  7. FUROSEMIDE [Concomitant]

REACTIONS (4)
  - HISTOPLASMOSIS [None]
  - BLOOD GLUCOSE INCREASED [None]
  - PRODUCT QUALITY ISSUE [None]
  - DRUG INEFFECTIVE [None]
